FAERS Safety Report 4728623-0 (Version None)
Quarter: 2005Q3

REPORT INFORMATION
  Report Type: 
  Country: None (occurrence: None)
  Receive Date: 20050729
  Receipt Date: 20050621
  Transmission Date: 20060218
  Serious: Yes (Other)
  Sender: FDA-Public Use
  Company Number: GBWYE763121JUN05

PATIENT
  Sex: Female

DRUGS (6)
  1. ENBREL [Suspect]
     Indication: DRUG USE FOR UNKNOWN INDICATION
     Route: 058
     Dates: start: 20040411, end: 20050506
  2. INFLIXIMAB [Suspect]
  3. PREDNISOLONE [Concomitant]
     Dosage: 10MG FREQUENCY UNSPECIFIED
     Dates: start: 20041001
  4. CELEBREX [Concomitant]
  5. ACTONEL [Concomitant]
  6. ANTIDEPRESSANT NOS [Concomitant]
     Dosage: 20MG FRQUENCY UNSPECIFIED

REACTIONS (2)
  - BLADDER CANCER [None]
  - DRUG INEFFECTIVE [None]
